FAERS Safety Report 17371772 (Version 1)
Quarter: 2020Q1

REPORT INFORMATION
  Report Type: Spontaneous
  Country: US (occurrence: US)
  Receive Date: 20200205
  Receipt Date: 20200205
  Transmission Date: 20200409
  Serious: No
  Sender: FDA-Public Use
  Company Number: US-JNJFOC-20200137140

PATIENT
  Age: 82 Year
  Sex: Female

DRUGS (2)
  1. DARZALEX [Suspect]
     Active Substance: DARATUMUMAB
     Indication: PLASMA CELL MYELOMA
     Dosage: 400 MG VIAL
     Route: 042
     Dates: start: 201904
  2. DARZALEX [Suspect]
     Active Substance: DARATUMUMAB
     Dosage: 100 MG VIAL
     Route: 042
     Dates: start: 201904

REACTIONS (1)
  - Influenza like illness [Unknown]

NARRATIVE: CASE EVENT DATE: 202001
